FAERS Safety Report 18079025 (Version 1)
Quarter: 2020Q3

REPORT INFORMATION
  Report Type: Spontaneous
  Country: US (occurrence: US)
  Receive Date: 20200728
  Receipt Date: 20200728
  Transmission Date: 20201103
  Serious: No
  Sender: FDA-Public Use
  Company Number: US-PFIZER INC-2020284867

PATIENT
  Age: 41 Year
  Sex: Female

DRUGS (3)
  1. INDOMETHACIN. [Suspect]
     Active Substance: INDOMETHACIN
     Dosage: UNK
  2. GLIPIZIDE. [Suspect]
     Active Substance: GLIPIZIDE
     Dosage: UNK
  3. XELJANZ [Suspect]
     Active Substance: TOFACITINIB CITRATE
     Dosage: 5 MG
     Dates: start: 20200427

REACTIONS (4)
  - Diarrhoea [Unknown]
  - Abdominal pain upper [Unknown]
  - Flank pain [Unknown]
  - Headache [Unknown]
